FAERS Safety Report 8556947-8 (Version None)
Quarter: 2012Q3

REPORT INFORMATION
  Report Type: 
  Country: None (occurrence: None)
  Receive Date: 20120801
  Receipt Date: 20120720
  Transmission Date: 20120928
  Serious: Yes (Life-Threatening)
  Sender: FDA-Public Use
  Company Number: IT-CELGENEUS-083-21660-12033560

PATIENT
  Sex: Male

DRUGS (2)
  1. DOXORUBICIN HCL [Suspect]
     Route: 041
     Dates: start: 20120309, end: 20120309
  2. ABRAXANE [Suspect]
     Route: 050
     Dates: start: 20120309, end: 20120309

REACTIONS (3)
  - MUCOSAL INFLAMMATION [None]
  - LEUKOPENIA [None]
  - THROMBOCYTOPENIA [None]
